FAERS Safety Report 9224843 (Version 1)
Quarter: 2013Q1

REPORT INFORMATION
  Report Type: Spontaneous
  Country: US (occurrence: None)
  Receive Date: 20120917
  Receipt Date: 20120917
  Transmission Date: 20140127
  Serious: Yes (Life-Threatening, Hospitalization)
  Sender: FDA-Public Use
  Company Number: 2011SP038010

PATIENT
  Age: 20 Year
  Sex: Female

DRUGS (1)
  1. IMPLANON (68 MG) [Suspect]
     Indication: CONTRACEPTION
     Dosage: SBDE
     Dates: start: 20110714

REACTIONS (4)
  - Ectopic pregnancy [None]
  - Pregnancy with implant contraceptive [None]
  - Menstruation irregular [None]
  - Urinary tract infection [None]
